FAERS Safety Report 16750687 (Version 2)
Quarter: 2019Q3

REPORT INFORMATION
  Report Type: Spontaneous
  Country: JP (occurrence: JP)
  Receive Date: 20190828
  Receipt Date: 20190920
  Transmission Date: 20191005
  Serious: Yes (Hospitalization, Other)
  Sender: FDA-Public Use
  Company Number: JP-PFIZER INC-2019362307

PATIENT
  Age: 82 Year
  Sex: Female
  Weight: 52 kg

DRUGS (17)
  1. AZELNIDIPINE [Concomitant]
     Active Substance: AZELNIDIPINE
     Dosage: 2 DF, 1X/DAY
     Route: 048
     Dates: start: 20190316
  2. FEBURIC [Concomitant]
     Active Substance: FEBUXOSTAT
     Dosage: 1 DF, 1X/DAY
     Route: 048
     Dates: start: 20190402
  3. ISOSORBIDE. [Concomitant]
     Active Substance: ISOSORBIDE
     Dosage: 1 DF, 1X/DAY
     Route: 058
     Dates: start: 20190329
  4. ROCEPHIN [Suspect]
     Active Substance: CEFTRIAXONE SODIUM
     Dosage: UNK
  5. SODIUM BICARBONATE. [Concomitant]
     Active Substance: SODIUM BICARBONATE
     Dosage: 2 DF, 2X/DAY
     Route: 048
     Dates: start: 20190827
  6. SPIRONOLACTONE. [Concomitant]
     Active Substance: SPIRONOLACTONE
     Dosage: 1 DF, 1X/DAY
     Route: 048
     Dates: start: 20190416
  7. TAKECAB [Concomitant]
     Active Substance: VONOPRAZAN FUMURATE
     Dosage: 1 DF, 1X/DAY
     Route: 048
     Dates: start: 20190802
  8. SODIUM BICARBONATE. [Concomitant]
     Active Substance: SODIUM BICARBONATE
     Dosage: 2 DF, 3X/DAY
     Route: 048
     Dates: start: 20190810, end: 20190827
  9. CEFTRIAXONE SODIUM PFIZER [Suspect]
     Active Substance: CEFTRIAXONE SODIUM
     Indication: DIVERTICULITIS
     Dosage: 1 G, 2X/DAY
     Route: 041
     Dates: start: 20190730, end: 20190807
  10. AZOSEMIDE [Concomitant]
     Active Substance: AZOSEMIDE
     Dosage: 2 DF, 1X/DAY
     Route: 048
     Dates: start: 20190329
  11. NORMAL SALINE [Concomitant]
     Active Substance: SODIUM CHLORIDE
     Dosage: 50 ML, 2X/DAY
     Route: 041
     Dates: start: 20190730, end: 20190816
  12. SOLDEM 3AG [Concomitant]
     Dosage: 500 ML, 2X/DAY
     Route: 041
     Dates: start: 20190806, end: 20190810
  13. BENIDIPINE HYDROCHLORIDE [Concomitant]
     Active Substance: BENIDIPINE HYDROCHLORIDE
     Dosage: 2 DF, 1X/DAY
     Route: 048
     Dates: start: 20190316
  14. BIO-THREE [Concomitant]
     Active Substance: HERBALS
     Dosage: 1 DF, 3X/DAY
     Route: 048
     Dates: start: 20190316
  15. SODIUM BICARBONATE. [Concomitant]
     Active Substance: SODIUM BICARBONATE
     Dosage: 1 DF, 3X/DAY
     Route: 048
     Dates: start: 20190807, end: 20190810
  16. CILNIDIPINE [Concomitant]
     Active Substance: CILNIDIPINE
     Dosage: 2 DF, 2X/DAY
     Route: 048
     Dates: start: 20190316
  17. AMLODIPINE [Concomitant]
     Active Substance: AMLODIPINE BESYLATE
     Dosage: 1 DF, 2X/DAY
     Route: 048
     Dates: start: 20190401, end: 20190812

REACTIONS (8)
  - Subcutaneous haematoma [Recovered/Resolved]
  - Electrolyte imbalance [Recovering/Resolving]
  - Altered state of consciousness [Recovered/Resolved]
  - Hypokalaemia [Unknown]
  - Acidosis [Recovering/Resolving]
  - Hypovitaminosis [Unknown]
  - Delirium [Recovering/Resolving]
  - Fall [Recovered/Resolved]

NARRATIVE: CASE EVENT DATE: 2019
